FAERS Safety Report 6566490-3 (Version None)
Quarter: 2010Q1

REPORT INFORMATION
  Report Type: 
  Country: None (occurrence: None)
  Receive Date: 20100202
  Receipt Date: 20100121
  Transmission Date: 20100710
  Serious: Yes (Other)
  Sender: FDA-Public Use
  Company Number: GB-SANOFI-AVENTIS-2009SA004590

PATIENT
  Age: 69 Year
  Sex: Male
  Weight: 81 kg

DRUGS (9)
  1. BLINDED THERAPY [Suspect]
     Route: 042
     Dates: start: 20091027, end: 20091027
  2. BLINDED THERAPY [Suspect]
     Route: 042
     Dates: start: 20090804, end: 20090804
  3. DOCETAXEL [Suspect]
     Route: 042
     Dates: start: 20091027, end: 20091027
  4. DOCETAXEL [Suspect]
     Route: 042
     Dates: start: 20090804, end: 20090804
  5. PREDNISOLONE [Suspect]
     Route: 048
     Dates: start: 20090804, end: 20091027
  6. ZOLADEX [Concomitant]
     Indication: HORMONE REPLACEMENT THERAPY
     Dates: start: 20050101
  7. CIPROFLOXACIN [Concomitant]
     Dates: start: 20091006
  8. STILBOESTROL [Concomitant]
     Dates: start: 20091117
  9. PREDFOAM [Concomitant]
     Dates: start: 20091117

REACTIONS (2)
  - NEUTROPENIA [None]
  - RECTAL ULCER [None]
